FAERS Safety Report 5962935-8 (Version None)
Quarter: 2008Q4

REPORT INFORMATION
  Report Type: 
  Country: None (occurrence: None)
  Receive Date: 20081124
  Receipt Date: 20081117
  Transmission Date: 20090506
  Serious: Yes (Other)
  Sender: FDA-Public Use
  Company Number: AU-JNJFOC-20081003897

PATIENT
  Sex: Male
  Weight: 94 kg

DRUGS (1)
  1. DURAGESIC-100 [Suspect]
     Indication: BACK PAIN
     Route: 062

REACTIONS (8)
  - ABDOMINAL PAIN [None]
  - BREAKTHROUGH PAIN [None]
  - DISORIENTATION [None]
  - PALLOR [None]
  - PRODUCT QUALITY ISSUE [None]
  - TACHYCARDIA [None]
  - WITHDRAWAL SYNDROME [None]
  - WRONG TECHNIQUE IN DRUG USAGE PROCESS [None]
